FAERS Safety Report 8830612 (Version 5)
Quarter: 2014Q1

REPORT INFORMATION
  Report Type: Spontaneous
  Country: US (occurrence: US)
  Receive Date: 20121008
  Receipt Date: 20140117
  Transmission Date: 20141002
  Serious: Yes (Hospitalization, Disabling, Other)
  Sender: FDA-Public Use
  Company Number: US-009507513-1202USA02291

PATIENT
  Sex: Female

DRUGS (5)
  1. FOSAMAX [Suspect]
     Indication: OSTEOPOROSIS
     Dosage: 70 MG, UNK
     Route: 048
     Dates: start: 199509
  2. FOSAMAX [Suspect]
     Dosage: 70 MG, UNK
     Route: 048
     Dates: start: 2005, end: 2009
  3. ALENDRONATE SODIUM [Suspect]
     Indication: OSTEOPOROSIS
     Dosage: 70 MG, UNK
     Route: 048
  4. CALCIUM (UNSPECIFIED) [Concomitant]
     Dosage: 500-1000
     Dates: start: 1997
  5. ASCORBIC ACID [Concomitant]
     Dosage: 500-1000
     Dates: start: 1997

REACTIONS (18)
  - Femur fracture [Recovering/Resolving]
  - Intramedullary rod insertion [Recovering/Resolving]
  - Myocardial infarction [Unknown]
  - Stent placement [Unknown]
  - Stent placement [Unknown]
  - Surgery [Unknown]
  - Biopsy [Recovered/Resolved]
  - Bone loss [Unknown]
  - Bursitis [Unknown]
  - Hypothyroidism [Unknown]
  - Arthropathy [Unknown]
  - Ventricular extrasystoles [Unknown]
  - Coronary artery disease [Unknown]
  - Blood pressure increased [Unknown]
  - Chest discomfort [Unknown]
  - Palpitations [Unknown]
  - Osteitis deformans [Unknown]
  - Balance disorder [Unknown]
